FAERS Safety Report 5252088-6 (Version None)
Quarter: 2007Q1

REPORT INFORMATION
  Report Type: 
  Country: None (occurrence: None)
  Receive Date: 20070228
  Receipt Date: 20070219
  Transmission Date: 20070707
  Serious: Yes (Disabling)
  Sender: FDA-Public Use
  Company Number: JP-ABBOTT-07P-087-0359836-00

PATIENT
  Sex: Male

DRUGS (9)
  1. KALETRA [Suspect]
     Indication: HIV INFECTION
     Route: 048
     Dates: start: 20050523, end: 20050725
  2. LAMIVUDINE [Concomitant]
     Indication: HIV INFECTION
     Route: 048
     Dates: start: 20030601, end: 20050522
  3. LAMIVUDINE [Concomitant]
     Route: 048
     Dates: start: 20050523, end: 20051128
  4. LAMIVUDINE [Concomitant]
     Route: 048
     Dates: start: 20051129
  5. ATAZANAVIR CAPSULES [Concomitant]
     Indication: HIV INFECTION
     Route: 048
     Dates: start: 20051129
  6. TENOFOVIR DISOPRAXIL FUMA TABLETS [Concomitant]
     Indication: HIV INFECTION
     Route: 048
     Dates: start: 20050523, end: 20050725
  7. ABACAVIR SULFATE [Concomitant]
     Indication: DRUG USE FOR UNKNOWN INDICATION
     Dates: start: 20051129
  8. RITONAVIR [Concomitant]
     Indication: DRUG USE FOR UNKNOWN INDICATION
     Dates: start: 20051129
  9. BACTRIM [Concomitant]
     Indication: DRUG USE FOR UNKNOWN INDICATION
     Dates: start: 20050523

REACTIONS (1)
  - RENAL IMPAIRMENT [None]
